FAERS Safety Report 14048356 (Version 1)
Quarter: 2017Q4

REPORT INFORMATION
  Report Type: Report from Study
  Country: US (occurrence: US)
  Receive Date: 20171005
  Receipt Date: 20171005
  Transmission Date: 20180321
  Serious: Yes (Other)
  Sender: FDA-Public Use
  Company Number: PHEH2017US031286

PATIENT
  Sex: Female

DRUGS (2)
  1. ZOMETA [Suspect]
     Active Substance: ZOLEDRONIC ACID
     Indication: BREAST CANCER
     Dosage: UNK
     Route: 065
  2. FEMARA [Suspect]
     Active Substance: LETROZOLE
     Indication: PRODUCT USED FOR UNKNOWN INDICATION
     Dosage: 2.5 MG, QD
     Route: 065

REACTIONS (10)
  - Bone cancer [Unknown]
  - Metastasis [Unknown]
  - Abortion spontaneous [Unknown]
  - Ligament sprain [Unknown]
  - Hepatic enzyme abnormal [Unknown]
  - Back injury [Unknown]
  - Fall [Unknown]
  - Vomiting [Unknown]
  - Nausea [Unknown]
  - Malaise [Unknown]
